FAERS Safety Report 4708940-0 (Version None)
Quarter: 2005Q3

REPORT INFORMATION
  Report Type: 
  Country: None (occurrence: None)
  Receive Date: 20050705
  Receipt Date: 20050620
  Transmission Date: 20060218
  Serious: Yes (Hospitalization, Other)
  Sender: FDA-Public Use
  Company Number: 2005092442

PATIENT
  Age: 50 Year
  Sex: Male
  Weight: 90 kg

DRUGS (5)
  1. EPLERENONE (EPLERENONE) [Suspect]
     Indication: ILL-DEFINED DISORDER
     Dosage: 50 MG (25 MG, BID), ORAL
     Route: 048
     Dates: start: 20040119
  2. CILAZAPRIL (CILAZAPRIL) [Concomitant]
  3. CARVEDIOLOL (CARVEDILOL) [Concomitant]
  4. ACETYLSALICYLIC CID (ACETYLSALICYLIC ACID) [Concomitant]
  5. ATORVASTATIN (ATORVASTATIN0 [Concomitant]

REACTIONS (2)
  - DIVERTICULUM INTESTINAL [None]
  - INTESTINAL POLYP [None]
